FAERS Safety Report 11146066 (Version 1)
Quarter: 2015Q2

REPORT INFORMATION
  Report Type: Spontaneous
  Country: US (occurrence: None)
  Receive Date: 20150527
  Receipt Date: 20150527
  Transmission Date: 20150821
  Serious: No
  Sender: FDA-Public Use
  Company Number: None

PATIENT
  Age: 66 Year
  Sex: Female
  Weight: 72.58 kg

DRUGS (2)
  1. DOXYCYCLINE. [Suspect]
     Active Substance: DOXYCYCLINE
     Indication: ARTHROPOD BITE
     Route: 048
     Dates: start: 20150512, end: 20150522
  2. MULTI VITAMIN [Suspect]
     Active Substance: VITAMINS

REACTIONS (4)
  - Paraesthesia [None]
  - Rash [None]
  - Erythema [None]
  - Pain [None]

NARRATIVE: CASE EVENT DATE: 20150522
